FAERS Safety Report 23581147 (Version 3)
Quarter: 2025Q2

REPORT INFORMATION
  Report Type: Report from Study
  Country: GB (occurrence: GB)
  Receive Date: 20240229
  Receipt Date: 20250528
  Transmission Date: 20250716
  Serious: Yes (Other)
  Sender: SANDOZ
  Company Number: GB-002147023-NVSC2020GB198696

PATIENT
  Sex: Female

DRUGS (1)
  1. OMNITROPE [Suspect]
     Active Substance: SOMATROPIN
     Indication: Hypopituitarism
     Route: 058

REACTIONS (5)
  - Hypothalamo-pituitary disorder [Unknown]
  - Memory impairment [Unknown]
  - Injection site bruising [Unknown]
  - Drug effect less than expected [Unknown]
  - Product dose omission issue [Unknown]
